FAERS Safety Report 5913847-7 (Version None)
Quarter: 2008Q4

REPORT INFORMATION
  Report Type: 
  Country: None (occurrence: None)
  Receive Date: 20081009
  Receipt Date: 20081003
  Transmission Date: 20090506
  Serious: Yes (Other)
  Sender: FDA-Public Use
  Company Number: A0750461A

PATIENT
  Age: 7 Year
  Sex: Female

DRUGS (2)
  1. LAMICTAL [Suspect]
     Dosage: 150MG TWICE PER DAY
     Route: 048
     Dates: start: 20030101
  2. UNKNOWN [Concomitant]

REACTIONS (10)
  - CONVULSION [None]
  - DISTURBANCE IN ATTENTION [None]
  - FATIGUE [None]
  - FEELING ABNORMAL [None]
  - HEART RATE INCREASED [None]
  - INTELLIGENCE TEST ABNORMAL [None]
  - LEARNING DISORDER [None]
  - MEMORY IMPAIRMENT [None]
  - MOOD SWINGS [None]
  - PALPITATIONS [None]
